FAERS Safety Report 25361097 (Version 3)
Quarter: 2025Q3

REPORT INFORMATION
  Report Type: Spontaneous
  Country: PH (occurrence: PH)
  Receive Date: 20250527
  Receipt Date: 20250809
  Transmission Date: 20251021
  Serious: Yes (Other)
  Sender: ALEXION PHARMACEUTICALS
  Company Number: PH-AstraZeneca-CH-00875412A

PATIENT
  Age: 57 Year
  Sex: Male
  Weight: 73 kg

DRUGS (3)
  1. IMFINZI [Suspect]
     Active Substance: DURVALUMAB
     Indication: Hepatic cancer
  2. TREMELIMUMAB [Suspect]
     Active Substance: TREMELIMUMAB
     Indication: Hepatic cancer
     Route: 065
  3. LENVATINIB [Concomitant]
     Active Substance: LENVATINIB
     Dosage: 10 MILLIGRAM, QD
     Route: 065
     Dates: start: 20241210

REACTIONS (2)
  - Alpha 1 foetoprotein increased [Recovered/Resolved]
  - Malignant neoplasm progression [Recovered/Resolved]
